FAERS Safety Report 8835337 (Version 2)
Quarter: 2012Q4

REPORT INFORMATION
  Report Type: 
  Country: IT (occurrence: IT)
  Receive Date: 20121011
  Receipt Date: 20121114
  Transmission Date: 20130627
  Serious: Yes (Hospitalization)
  Sender: FDA-Public Use
  Company Number: IT-ALLERGAN-1213626US

PATIENT
  Age: 38 Year
  Sex: Male

DRUGS (2)
  1. EXOCIN [Suspect]
     Indication: ANTIBIOTIC THERAPY
     Dosage: 5 Gtt, qd
     Route: 047
     Dates: start: 20120914, end: 20120916
  2. CIPROXIN [Suspect]
     Indication: DRUG USE FOR UNKNOWN INDICATION
     Dosage: 500 mg, UNK
     Dates: start: 20120914, end: 20120916

REACTIONS (4)
  - Arthralgia [Recovering/Resolving]
  - Arthritis reactive [Recovering/Resolving]
  - Eyelid oedema [Recovering/Resolving]
  - Conjunctival hyperaemia [Recovering/Resolving]
